FAERS Safety Report 10414926 (Version 25)
Quarter: 2017Q2

REPORT INFORMATION
  Report Type: Report from Study
  Country: CA (occurrence: CA)
  Receive Date: 20140828
  Receipt Date: 20170420
  Transmission Date: 20170829
  Serious: Yes (Hospitalization, Other)
  Sender: FDA-Public Use
  Company Number: PHHY2013CA100367

PATIENT
  Age: 38 Year
  Sex: Female

DRUGS (8)
  1. SANDOSTATIN LAR DEPOT [Suspect]
     Active Substance: OCTREOTIDE ACETATE
     Indication: CARCINOID SYNDROME
     Dosage: 60 MG, QMO (EVERY 4 WEEKS)
     Route: 030
     Dates: start: 20130722
  2. SANDOSTATIN LAR DEPOT [Suspect]
     Active Substance: OCTREOTIDE ACETATE
     Dosage: 20 MG, QMO (EVERY 4 WEEKS)
     Route: 030
     Dates: start: 20130822
  3. SANDOSTATIN LAR DEPOT [Suspect]
     Active Substance: OCTREOTIDE ACETATE
     Dosage: 30 MG, QMO (EVERY 28 DAYS)
     Route: 030
     Dates: start: 20130821
  4. SANDOSTATIN LAR DEPOT [Suspect]
     Active Substance: OCTREOTIDE ACETATE
     Dosage: 30 MG, QMO (EVERY 4 WEEKS)
     Route: 030
     Dates: start: 20160428
  5. SANDOSTATIN LAR DEPOT [Suspect]
     Active Substance: OCTREOTIDE ACETATE
     Dosage: 60 MG, QMO (EVERY 4 WEEKS)
     Route: 030
     Dates: start: 20140730
  6. COUMADINE [Concomitant]
     Active Substance: WARFARIN SODIUM
     Dosage: 5 MG, QD
     Route: 065
  7. SANDOSTATIN LAR DEPOT [Suspect]
     Active Substance: OCTREOTIDE ACETATE
     Dosage: 60 MG, QMO (EVERY 30 DAYS)
     Route: 030
     Dates: start: 20140216
  8. COUMADINE [Concomitant]
     Active Substance: WARFARIN SODIUM
     Indication: HEPATIC VEIN OCCLUSION
     Dosage: 4 MG, QD
     Route: 065

REACTIONS (25)
  - Chest pain [Unknown]
  - Hepatic vein thrombosis [Recovering/Resolving]
  - Pain in extremity [Not Recovered/Not Resolved]
  - International normalised ratio increased [Unknown]
  - Fear of death [Unknown]
  - Eye infection viral [Unknown]
  - Post procedural haemorrhage [Recovering/Resolving]
  - Inappropriate schedule of drug administration [Unknown]
  - Body temperature decreased [Unknown]
  - Alopecia [Unknown]
  - Blood pressure systolic increased [Unknown]
  - Emotional disorder [Unknown]
  - Intra-abdominal fluid collection [Unknown]
  - Dyspnoea [Unknown]
  - Post procedural complication [Recovering/Resolving]
  - Hepatic artery stenosis [Unknown]
  - Abdominal distension [Unknown]
  - Injection site haemorrhage [Unknown]
  - Weight decreased [Unknown]
  - Respiratory rate increased [Unknown]
  - Syringe issue [Unknown]
  - Malaise [Unknown]
  - Small intestinal haemorrhage [Unknown]
  - Heart rate increased [Unknown]
  - Needle issue [Unknown]

NARRATIVE: CASE EVENT DATE: 20140502
